FAERS Safety Report 5893079-1 (Version None)
Quarter: 2008Q3

REPORT INFORMATION
  Report Type: 
  Country: None (occurrence: None)
  Receive Date: 20080923
  Receipt Date: 20080728
  Transmission Date: 20090109
  Serious: Yes (Other)
  Sender: FDA-Public Use
  Company Number: US-ASTRAZENECA-2006UW05898

PATIENT
  Age: 51 Year
  Sex: Female
  Weight: 90.7 kg

DRUGS (6)
  1. SEROQUEL [Suspect]
     Indication: SCHIZOPHRENIA
     Route: 048
     Dates: start: 19980101
  2. SEROQUEL [Suspect]
     Indication: DEPRESSION
     Route: 048
     Dates: start: 19980101
  3. GEODON [Concomitant]
     Dates: start: 20070131
  4. RISPERDAL [Concomitant]
     Dates: start: 19970101
  5. LOVASTATIN [Concomitant]
     Dates: start: 20060101
  6. DILTIAZEM HCL [Concomitant]
     Dates: start: 20060101

REACTIONS (2)
  - DIABETES MELLITUS [None]
  - PANCREATITIS [None]
